FAERS Safety Report 9798625 (Version 1)
Quarter: 2014Q1

REPORT INFORMATION
  Report Type: Spontaneous
  Country: FR (occurrence: FR)
  Receive Date: 20140106
  Receipt Date: 20140106
  Transmission Date: 20141002
  Serious: Yes (Hospitalization)
  Sender: FDA-Public Use
  Company Number: FR-B.I. PHARMACEUTICALS,INC./RIDGEFIELD-2014-BI-00135FF

PATIENT
  Age: 89 Year
  Sex: Male

DRUGS (5)
  1. PRADAXA [Suspect]
     Dosage: 220 MG
     Route: 048
     Dates: start: 20130907, end: 20131001
  2. OFLOCET 200MG [Concomitant]
     Dosage: 400 MG
     Route: 048
     Dates: start: 20130919, end: 20130927
  3. XATRAL LP 10MG [Concomitant]
     Dosage: 10 MG
     Route: 048
     Dates: start: 20130917
  4. AVODART 0.5MG [Concomitant]
     Dosage: 0.5 MG
     Route: 048
     Dates: start: 20130917
  5. TADENAN 50MG [Concomitant]
     Dosage: 100 MG
     Route: 048

REACTIONS (2)
  - Oedema peripheral [Recovered/Resolved]
  - Haematoma [Recovered/Resolved]
